FAERS Safety Report 15621722 (Version 1)
Quarter: 2018Q4

REPORT INFORMATION
  Report Type: Spontaneous
  Country: US (occurrence: US)
  Receive Date: 20181109
  Receipt Date: 20181109
  Transmission Date: 20190205
  Serious: Yes (Hospitalization)
  Sender: FDA-Public Use
  Company Number: None

PATIENT
  Age: 56 Year
  Sex: Female
  Weight: 92.9 kg

DRUGS (2)
  1. NIVOLUMAB 240MG [Suspect]
     Active Substance: NIVOLUMAB
     Indication: SMALL CELL LUNG CANCER
     Dosage: ?          OTHER FREQUENCY:BIWEEKLY;?
     Route: 042
     Dates: start: 20180517, end: 20181018
  2. LUTATHERA [Suspect]
     Active Substance: LUTETIUM OXODOTREOTIDE LU-177
     Dosage: ?          OTHER FREQUENCY:EVERY 8 WEEKS;?
     Route: 042
     Dates: start: 20180531, end: 20180920

REACTIONS (4)
  - Dyspnoea [None]
  - Condition aggravated [None]
  - Pneumonitis [None]
  - Cough [None]

NARRATIVE: CASE EVENT DATE: 20181108
